FAERS Safety Report 9241630 (Version 2)
Quarter: 2013Q3

REPORT INFORMATION
  Report Type: Spontaneous
  Country: US (occurrence: US)
  Receive Date: 20130419
  Receipt Date: 20130703
  Transmission Date: 20140515
  Serious: No
  Sender: FDA-Public Use
  Company Number: US-009507513-1304USA008663

PATIENT
  Sex: Female

DRUGS (13)
  1. VICTRELIS [Suspect]
     Indication: CHRONIC HEPATITIS B
     Dosage: 800 MG, Q8H
     Route: 048
     Dates: start: 20130307
  2. VICTRELIS [Suspect]
     Indication: HEPATITIS C
  3. PEGINTRON [Suspect]
     Dosage: 150 MICROGRAM, QW
     Route: 058
     Dates: start: 2013
  4. RIBASPHERE [Suspect]
  5. PREMARIN [Concomitant]
  6. ATENOLOL [Concomitant]
  7. PANTOPRAZOLE [Concomitant]
  8. TOPAMAX [Concomitant]
  9. VITAMINS (UNSPECIFIED) [Concomitant]
  10. GARLIC [Concomitant]
  11. OMEGA-3 MARINE TRIGLYCERIDES [Concomitant]
  12. CYANOCOBALAMIN [Concomitant]
  13. CHOLECALCIFEROL [Concomitant]

REACTIONS (7)
  - Dyspepsia [Unknown]
  - Nausea [Unknown]
  - Injection site erythema [Unknown]
  - Cough [Unknown]
  - Oropharyngeal pain [Unknown]
  - Bronchitis [Unknown]
  - Regurgitation [Unknown]
